FAERS Safety Report 8460199 (Version 6)
Quarter: 2014Q2

REPORT INFORMATION
  Report Type: Spontaneous
  Country: JP (occurrence: None)
  Receive Date: 20120306
  Receipt Date: 20140521
  Transmission Date: 20141212
  Serious: Yes (Death, Other)
  Sender: FDA-Public Use
  Company Number: ADR-2012-00491

PATIENT
  Age: 30 Year
  Sex: Male

DRUGS (3)
  1. BACLOFEN [Suspect]
     Dosage: SEE B5 450 MCG/DAY?
  2. MYONAL [Concomitant]
  3. LIORESAL [Concomitant]

REACTIONS (5)
  - Medical device complication [None]
  - Procedural complication [None]
  - Asphyxia [None]
  - Aspiration [None]
  - Bedridden [None]
